FAERS Safety Report 21363972 (Version 1)
Quarter: 2022Q3

REPORT INFORMATION
  Report Type: Spontaneous
  Country: US (occurrence: None)
  Receive Date: 20220921
  Receipt Date: 20220921
  Transmission Date: 20221027
  Serious: Yes (Life-Threatening, Hospitalization)
  Sender: FDA-Public Use
  Company Number: None

PATIENT
  Age: 48 Year
  Sex: Female
  Weight: 57.15 kg

DRUGS (1)
  1. VENOFER [Suspect]
     Active Substance: IRON SUCROSE
     Indication: Anaemia
     Dates: start: 20220921, end: 20220921

REACTIONS (8)
  - Infusion related reaction [None]
  - Chest pain [None]
  - Back pain [None]
  - Nausea [None]
  - Hyperhidrosis [None]
  - Lethargy [None]
  - Hypotension [None]
  - Heart rate decreased [None]

NARRATIVE: CASE EVENT DATE: 20220921
